FAERS Safety Report 20933191 (Version 4)
Quarter: 2022Q3

REPORT INFORMATION
  Report Type: Report from Study
  Country: FR (occurrence: FR)
  Receive Date: 20220608
  Receipt Date: 20220712
  Transmission Date: 20221027
  Serious: Yes (Hospitalization)
  Sender: FDA-Public Use
  Company Number: FR-ROCHE-2908009

PATIENT
  Age: 67 Year
  Sex: Male
  Weight: 68 kg

DRUGS (50)
  1. PREDNISONE [Suspect]
     Active Substance: PREDNISONE
     Indication: Diffuse large B-cell lymphoma
     Dosage: 100 MILLIGRAM, QD (START DATE OF MOST RECENT DOSE OF STUDY DRUG PRIOR TO AE: 11/OCT/2021)
     Route: 048
     Dates: start: 20210826
  2. CYCLOPHOSPHAMIDE [Suspect]
     Active Substance: CYCLOPHOSPHAMIDE
     Indication: Diffuse large B-cell lymphoma
     Dosage: 750 MILLIGRAM/SQ. METER, (MOST RECENT DOSE OF STUDY DRUG PRIOR TO SERIOUS ADVERSE EVENT.)
     Route: 042
     Dates: start: 20210826, end: 20210826
  3. VINCRISTINE [Suspect]
     Active Substance: VINCRISTINE
     Indication: Diffuse large B-cell lymphoma
     Dosage: 1.4 MILLIGRAM/SQ. METER, Q3W ( (MOST RECENT DOSE OF STUDY DRUG PRIOR TO SERIOUS ADVERSE EVENT)
     Route: 042
     Dates: start: 20210826
  4. GLOFITAMAB [Suspect]
     Active Substance: GLOFITAMAB
     Indication: Diffuse large B-cell lymphoma
     Dosage: 2500 MICROGRAM, Q3W (ON 14/OCT/2021 FROM 1:45 PM TO 5:30 PM PATIENT RECEIVED THE MOST RECENT DOSE)
     Route: 042
     Dates: start: 20210923
  5. GLOFITAMAB [Suspect]
     Active Substance: GLOFITAMAB
     Dosage: 30 MILLIGRAM, Q21D
     Route: 042
     Dates: start: 20210923
  6. DOXORUBICIN [Suspect]
     Active Substance: DOXORUBICIN
     Indication: Diffuse large B-cell lymphoma
     Dosage: 50 MILLIGRAM/SQ. METER, MOST RECENT DOSE OF STUDY DRUG PRIOR TO SERIOUS ADVERSE EVENT
     Route: 042
     Dates: start: 20210826, end: 20210826
  7. RITUXIMAB [Suspect]
     Active Substance: RITUXIMAB
     Indication: Diffuse large B-cell lymphoma
     Dosage: 375 MILLIGRAM/SQ. METER, MOST RECENT DOSE OF STUDY DRUG PRIOR TO SERIOUS ADVERSE EVENT.
     Route: 042
     Dates: start: 20210826
  8. RITUXIMAB [Suspect]
     Active Substance: RITUXIMAB
     Dosage: 375 MILLIGRAM/SQ. METER, MOST RECENT DOSE OF STUDY DRUG PRIOR TO SERIOUS ADVERSE EVENT.
     Route: 042
     Dates: start: 20210826
  9. RITUXIMAB [Suspect]
     Active Substance: RITUXIMAB
     Dosage: 680 MILLIGRAM/SQ. METER, Q3W (THE PATIENT RECEIVED THE MOST RECENT DOSE OF STUDY DRUG)
     Route: 042
     Dates: start: 20210826
  10. DEXAMETHASONE [Concomitant]
     Active Substance: DEXAMETHASONE
     Indication: Premedication
     Dosage: 20 MILLIGRAM
     Route: 042
     Dates: start: 20210923, end: 20210923
  11. LEUCOVORIN CALCIUM [Concomitant]
     Active Substance: LEUCOVORIN CALCIUM
     Dosage: 50 MILLIGRAM, ONGOING YES
     Route: 065
     Dates: start: 20210826
  12. CALCIUM PHOSPHATE, DIBASIC, ANHYDROUS\MAGNESIUM GLYCEROPHOSPHATE\PHOSP [Concomitant]
     Active Substance: CALCIUM PHOSPHATE, DIBASIC, ANHYDROUS\MAGNESIUM GLYCEROPHOSPHATE\PHOSPHORIC ACID\SODIUM PHOSPHATE, D
     Dosage: UNK, ONGOING NO
     Route: 065
     Dates: start: 20211214, end: 20211228
  13. VALACYCLOVIR HYDROCHLORIDE [Concomitant]
     Active Substance: VALACYCLOVIR HYDROCHLORIDE
     Dosage: 1 GRAM, ONGOING YES
     Route: 065
     Dates: start: 20210826
  14. Loxen [Concomitant]
     Indication: Hypertension
     Dosage: UNK, ONGOING YES
     Route: 065
     Dates: start: 20210905
  15. PREGABALIN [Concomitant]
     Active Substance: PREGABALIN
     Dosage: UNK, ONGOING NO
     Route: 065
     Dates: start: 20210115, end: 20210116
  16. FILGRASTIM [Concomitant]
     Active Substance: FILGRASTIM
     Dosage: UNK, ONGOING NO
     Route: 065
     Dates: start: 20211124, end: 20211129
  17. FILGRASTIM [Concomitant]
     Active Substance: FILGRASTIM
     Dosage: UNK, ONGOING NO
     Route: 065
     Dates: start: 20211215, end: 20211220
  18. FILGRASTIM [Concomitant]
     Active Substance: FILGRASTIM
     Dosage: UNK, 48 U
     Route: 065
     Dates: start: 20210831, end: 20210906
  19. FILGRASTIM [Concomitant]
     Active Substance: FILGRASTIM
     Dosage: UNK, ONGOING NO
     Route: 065
     Dates: start: 20211104, end: 20211109
  20. FILGRASTIM [Concomitant]
     Active Substance: FILGRASTIM
     Dosage: UNK, ONGOING NO
     Route: 065
     Dates: start: 20211012, end: 20211018
  21. ACETAMINOPHEN [Concomitant]
     Active Substance: ACETAMINOPHEN
     Indication: Premedication
     Dosage: 1 GRAM, ONGOING NOGIVEN FOR PROPHYLAXIS YES
     Route: 048
     Dates: start: 20210923, end: 20210923
  22. ACETAMINOPHEN [Concomitant]
     Active Substance: ACETAMINOPHEN
     Dosage: 1000 MILLIGRAM, ONGOING NOGIVEN FOR PROPHYLAXIS YES
     Route: 048
     Dates: start: 20211207, end: 20211207
  23. ACETAMINOPHEN [Concomitant]
     Active Substance: ACETAMINOPHEN
     Dosage: 1 GRAM, ONGOING NOGIVEN FOR PROPHYLAXIS YES
     Route: 048
     Dates: start: 20210916, end: 20210916
  24. ACETAMINOPHEN [Concomitant]
     Active Substance: ACETAMINOPHEN
     Dosage: 1000 MILLIGRAM, ONGOING NOGIVEN FOR PROPHYLAXIS YES
     Route: 048
     Dates: start: 20211123, end: 20211123
  25. ACETAMINOPHEN [Concomitant]
     Active Substance: ACETAMINOPHEN
     Dosage: 1 GRAM, ONGOING NOGIVEN FOR PROPHYLAXIS YES
     Route: 048
     Dates: start: 20211007, end: 20211007
  26. ACETAMINOPHEN [Concomitant]
     Active Substance: ACETAMINOPHEN
     Dosage: 1000 MILLIGRAM, ONGOING NO
     Route: 048
     Dates: start: 20211116, end: 20211116
  27. ACETAMINOPHEN [Concomitant]
     Active Substance: ACETAMINOPHEN
     Dosage: 1000 MILLIGRAM, ONGOING NO
     Route: 048
     Dates: start: 20211103, end: 20211103
  28. ACETAMINOPHEN [Concomitant]
     Active Substance: ACETAMINOPHEN
     Dosage: 1000 MILLIGRAM, ONGOING NO
     Route: 048
     Dates: start: 20211214, end: 20211214
  29. ACETAMINOPHEN [Concomitant]
     Active Substance: ACETAMINOPHEN
     Dosage: 1000 MILLIGRAM, ONGOING NOGIVEN FOR PROPHYLAXIS YES
     Route: 048
     Dates: start: 20211028, end: 20211028
  30. ACETAMINOPHEN [Concomitant]
     Active Substance: ACETAMINOPHEN
     Dosage: 1 GRAM, ONGOING NOGIVEN FOR PROPHYLAXIS YES
     Route: 048
     Dates: start: 20210930, end: 20210930
  31. ACETAMINOPHEN [Concomitant]
     Active Substance: ACETAMINOPHEN
     Dosage: 1000 MILLIGRAM, ONGOING NOGIVEN FOR PROPHYLAXIS YES
     Route: 048
     Dates: start: 20211014, end: 20211014
  32. ACETAMINOPHEN [Concomitant]
     Active Substance: ACETAMINOPHEN
     Dosage: 1 GRAM, ONGOING NOGIVEN FOR PROPHYLAXIS YES
     Route: 048
     Dates: start: 20210826, end: 20210826
  33. LORATADINE [Concomitant]
     Active Substance: LORATADINE
     Indication: Premedication
     Dosage: 10 MILLIGRAM, ONGOING NOGIVEN FOR PROPHYLAXIS YES
     Route: 048
     Dates: start: 20210930, end: 20210930
  34. LORATADINE [Concomitant]
     Active Substance: LORATADINE
     Dosage: 10 MILLIGRAM, ONGOING NOGIVEN FOR PROPHYLAXIS YES
     Route: 048
     Dates: start: 20210923, end: 20210923
  35. LORATADINE [Concomitant]
     Active Substance: LORATADINE
     Dosage: 10 MILLIGRAM, ONGOING NOGIVEN FOR PROPHYLAXIS YES
     Route: 048
     Dates: start: 20211116, end: 20211116
  36. LORATADINE [Concomitant]
     Active Substance: LORATADINE
     Dosage: 10 MILLIGRAM, ONGOING NOGIVEN FOR PROPHYLAXIS YES
     Route: 048
     Dates: start: 20211014, end: 20211014
  37. LORATADINE [Concomitant]
     Active Substance: LORATADINE
     Dosage: 10 MILLIGRAM, ONGOING NO
     Route: 048
     Dates: start: 20210916, end: 20210916
  38. LORATADINE [Concomitant]
     Active Substance: LORATADINE
     Dosage: 10 MILLIGRAM, ONGOING NOGIVEN FOR PROPHYLAXIS YES
     Route: 048
     Dates: start: 20211103, end: 20211103
  39. LORATADINE [Concomitant]
     Active Substance: LORATADINE
     Dosage: 10 MILLIGRAM, ONGOING NO
     Route: 048
     Dates: start: 20211214, end: 20211214
  40. LORATADINE [Concomitant]
     Active Substance: LORATADINE
     Dosage: UNK, ONGOING NO
     Route: 048
     Dates: start: 20211123, end: 20211123
  41. LORATADINE [Concomitant]
     Active Substance: LORATADINE
     Dosage: 10 MILLIGRAM, ONGOING NOGIVEN FOR PROPHYLAXIS YES
     Route: 048
     Dates: start: 20211028, end: 20211028
  42. LORATADINE [Concomitant]
     Active Substance: LORATADINE
     Dosage: 10 MILLIGRAM, ONGOING NOGIVEN FOR PROPHYLAXIS YES
     Route: 048
     Dates: start: 20211007, end: 20211007
  43. LORATADINE [Concomitant]
     Active Substance: LORATADINE
     Dosage: 10 MILLIGRAM, ONGOING NOGIVEN FOR PROPHYLAXIS YES
     Route: 048
     Dates: start: 20210826, end: 20210826
  44. LORATADINE [Concomitant]
     Active Substance: LORATADINE
     Dosage: 10 MILLIGRAM, ONGOING NOGIVEN FOR PROPHYLAXIS YES
     Route: 048
     Dates: start: 20211207, end: 20211207
  45. ALLOPURINOL [Concomitant]
     Active Substance: ALLOPURINOL
     Dosage: 300 MILLIGRAM
     Route: 065
     Dates: start: 20210826
  46. ALLOPURINOL [Concomitant]
     Active Substance: ALLOPURINOL
     Dosage: UNK, ONGOING NO
     Route: 065
     Dates: start: 20210823, end: 20211007
  47. BACTRIM [Concomitant]
     Active Substance: SULFAMETHOXAZOLE\TRIMETHOPRIM
     Dosage: UNK, 400 MG/80 MGONGOING YES
     Route: 065
     Dates: start: 20210826
  48. ESOMEPRAZOLE [Concomitant]
     Active Substance: ESOMEPRAZOLE
     Indication: Prophylaxis against gastrointestinal ulcer
     Dosage: UNK, ONGOING NO
     Route: 065
     Dates: start: 20210917, end: 20210920
  49. ESOMEPRAZOLE [Concomitant]
     Active Substance: ESOMEPRAZOLE
     Dosage: UNK, ONGOING NO
     Route: 065
     Dates: start: 20211008, end: 20211011
  50. FLUTICASONE [Concomitant]
     Active Substance: FLUTICASONE
     Dosage: UNK, ONGOING YES
     Route: 065

REACTIONS (4)
  - Diarrhoea [Recovered/Resolved]
  - Febrile neutropenia [Recovered/Resolved]
  - Neutrophil count decreased [Recovering/Resolving]
  - Pyrexia [Recovering/Resolving]

NARRATIVE: CASE EVENT DATE: 20210904
